FAERS Safety Report 21053032 (Version 2)
Quarter: 2022Q3

REPORT INFORMATION
  Report Type: Spontaneous
  Country: JP (occurrence: JP)
  Receive Date: 20220707
  Receipt Date: 20220727
  Transmission Date: 20221027
  Serious: Yes (Death)
  Sender: FDA-Public Use
  Company Number: JP-BAYER-2022A093890

PATIENT
  Age: 71 Year
  Sex: Male

DRUGS (4)
  1. XOFIGO [Suspect]
     Active Substance: RADIUM RA-223 DICHLORIDE
     Indication: Hormone-refractory prostate cancer
     Dosage: TWICE
     Dates: start: 20161212, end: 20170110
  2. XOFIGO [Suspect]
     Active Substance: RADIUM RA-223 DICHLORIDE
     Indication: Metastases to bone
  3. ROXATIDINE ACETATE HYDROCHLORIDE [Concomitant]
     Active Substance: ROXATIDINE ACETATE HYDROCHLORIDE
     Dosage: DAILY DOSE 150 MG
     Dates: start: 20170110
  4. GASLON [Concomitant]
     Active Substance: IRSOGLADINE MALEATE
     Dosage: DAILY DOSE 4 MG
     Dates: start: 20170110

REACTIONS (3)
  - Hormone-refractory prostate cancer [Fatal]
  - Decreased appetite [Recovering/Resolving]
  - Lymphadenopathy [Not Recovered/Not Resolved]

NARRATIVE: CASE EVENT DATE: 20170128
